FAERS Safety Report 4718693-8 (Version None)
Quarter: 2005Q3

REPORT INFORMATION
  Report Type: 
  Country: None (occurrence: None)
  Receive Date: 20050719
  Receipt Date: 20050706
  Transmission Date: 20060218
  Serious: Yes (Other)
  Sender: FDA-Public Use
  Company Number: 2005098049

PATIENT
  Sex: Male
  Weight: 99.7913 kg

DRUGS (2)
  1. DILANTIN [Suspect]
     Indication: GRAND MAL CONVULSION
     Dosage: ORAL
     Route: 048
  2. DEPAKOTE [Concomitant]

REACTIONS (4)
  - DRUG LEVEL DECREASED [None]
  - GRAND MAL CONVULSION [None]
  - INCORRECT DOSE ADMINISTERED [None]
  - TREATMENT NONCOMPLIANCE [None]
